FAERS Safety Report 16199948 (Version 1)
Quarter: 2019Q2

REPORT INFORMATION
  Report Type: Spontaneous
  Country: PL (occurrence: PL)
  Receive Date: 20190415
  Receipt Date: 20190415
  Transmission Date: 20190711
  Serious: Yes (Death, Hospitalization)
  Sender: FDA-Public Use
  Company Number: PHHY2019PL086357

PATIENT
  Age: 8 Month
  Sex: Male

DRUGS (3)
  1. BUSILVEX [Suspect]
     Active Substance: BUSULFAN
     Indication: STEM CELL TRANSPLANT
     Dosage: 4X4X1.0 MG/KG
     Route: 042
  2. CAMPATH [Suspect]
     Active Substance: ALEMTUZUMAB
     Indication: PROPHYLAXIS AGAINST GRAFT VERSUS HOST DISEASE
     Dosage: 3X0.2 MG/KG
     Route: 065
  3. FLUDARABINE [Suspect]
     Active Substance: FLUDARABINE PHOSPHATE
     Indication: STEM CELL TRANSPLANT
     Dosage: 4.4 MG/M2, UNK
     Route: 042

REACTIONS (13)
  - Hydrocephalus [Fatal]
  - Paronychia [Fatal]
  - Cerebral disorder [Fatal]
  - Cerebral aspergillosis [Fatal]
  - Hemiplegia [Fatal]
  - Altered state of consciousness [Fatal]
  - Hypertension [Fatal]
  - Hypertensive crisis [Fatal]
  - Neurological decompensation [Fatal]
  - Pyrexia [Fatal]
  - Mucosal inflammation [Fatal]
  - Epilepsy [Fatal]
  - Loss of consciousness [Fatal]

NARRATIVE: CASE EVENT DATE: 2011
